FAERS Safety Report 5805600-X (Version None)
Quarter: 2008Q3

REPORT INFORMATION
  Report Type: 
  Country: None (occurrence: None)
  Receive Date: 20080710
  Receipt Date: 20080627
  Transmission Date: 20090109
  Serious: Yes (Hospitalization)
  Sender: FDA-Public Use
  Company Number: US-ELI_LILLY_AND_COMPANY-US200806006405

PATIENT
  Sex: Female

DRUGS (3)
  1. FORTEO [Suspect]
     Indication: BONE DISORDER
     Dates: start: 20070927
  2. CALCIUM [Concomitant]
  3. ANTIHYPERTENSIVES [Concomitant]

REACTIONS (2)
  - BLOOD PRESSURE INCREASED [None]
  - OSTEOMYELITIS [None]
